FAERS Safety Report 7985451-0 (Version None)
Quarter: 2011Q4

REPORT INFORMATION
  Report Type: 
  Country: None (occurrence: None)
  Receive Date: 20111216
  Receipt Date: 20111212
  Transmission Date: 20120403
  Serious: Yes (Other)
  Sender: FDA-Public Use
  Company Number: BR-ABBOTT-11P-020-0882794-00

PATIENT
  Sex: Female
  Weight: 58 kg

DRUGS (11)
  1. CLONAZEPAM [Concomitant]
     Indication: RELAXATION THERAPY
     Dosage: 10 DROPS IN THE MORNING
     Route: 048
  2. PANTOPRAZOLE [Concomitant]
     Indication: GASTRIC DISORDER
     Route: 048
  3. ATORVASTATIN [Concomitant]
     Indication: BLOOD CHOLESTEROL INCREASED
     Route: 048
  4. CYMBALTA [Concomitant]
     Indication: PSORIATIC ARTHROPATHY
     Route: 048
  5. PANTOPRAZOLE [Concomitant]
     Indication: PROPHYLAXIS
  6. TICLOPIDINE HCL [Concomitant]
     Indication: THROMBOSIS PROPHYLAXIS
     Route: 048
  7. METHOTREXATE [Concomitant]
     Indication: PSORIATIC ARTHROPATHY
     Dosage: 2 TABLETS PER WEEK
     Route: 048
  8. HUMIRA [Suspect]
     Indication: PSORIATIC ARTHROPATHY
     Route: 058
     Dates: start: 20091130
  9. VASTAREL [Concomitant]
     Indication: CARDIAC DISORDER
     Route: 048
  10. SUSTRATE [Concomitant]
     Indication: CARDIAC DISORDER
     Route: 048
  11. CLONAZEPAM [Concomitant]
     Indication: SLEEP DISORDER THERAPY
     Route: 048

REACTIONS (2)
  - URINARY TRACT INFECTION [None]
  - URINARY INCONTINENCE [None]
